FAERS Safety Report 5306054-2 (Version None)
Quarter: 2007Q2

REPORT INFORMATION
  Report Type: 
  Country: None (occurrence: None)
  Receive Date: 20070424
  Receipt Date: 20060404
  Transmission Date: 20071010
  Serious: No
  Sender: FDA-Public Use
  Company Number: US-BRISTOL-MYERS SQUIBB COMPANY-13335948

PATIENT
  Age: 80 Year
  Sex: Female
  Weight: 70 kg

DRUGS (2)
  1. HYDREA [Suspect]
     Indication: THROMBOCYTOPENIA
  2. THYROID SUPPLEMENT [Concomitant]

REACTIONS (2)
  - PRURITUS [None]
  - RASH [None]
